FAERS Safety Report 26021553 (Version 2)
Quarter: 2025Q4

REPORT INFORMATION
  Report Type: Report from Study
  Country: US (occurrence: US)
  Receive Date: 20251110
  Receipt Date: 20251225
  Transmission Date: 20260117
  Serious: No
  Sender: MALLINCKRODT
  Company Number: US-MALLINCKRODT-MNK202507012

PATIENT
  Age: 62 Year
  Sex: Male

DRUGS (2)
  1. CORTICOTROPIN [Suspect]
     Active Substance: CORTICOTROPIN
     Indication: Noninfective chorioretinitis
     Dosage: 80 UNITS
     Dates: start: 20251105
  2. TRULICITY [Concomitant]
     Active Substance: DULAGLUTIDE
     Dosage: UNKNOWN

REACTIONS (2)
  - Injection site discharge [Unknown]
  - Injection site nodule [Unknown]

NARRATIVE: CASE EVENT DATE: 20251101
